FAERS Safety Report 17121266 (Version 1)
Quarter: 2019Q4

REPORT INFORMATION
  Report Type: Spontaneous
  Country: US (occurrence: US)
  Receive Date: 20191205
  Receipt Date: 20191205
  Transmission Date: 20200122
  Serious: Yes (Disabling)
  Sender: FDA-Public Use
  Company Number: None

PATIENT
  Age: 39 Year
  Sex: Female
  Weight: 93.15 kg

DRUGS (12)
  1. PROTONIX [Concomitant]
     Active Substance: PANTOPRAZOLE SODIUM
  2. ELIQUIS [Concomitant]
     Active Substance: APIXABAN
  3. ADEMPAS [Concomitant]
     Active Substance: RIOCIGUAT
  4. CYCLOBENZABRINE [Concomitant]
  5. ADEMPAS [Suspect]
     Active Substance: RIOCIGUAT
     Indication: PULMONARY HYPERTENSION
     Dosage: ?          QUANTITY:1 TABLET(S);?
     Route: 048
     Dates: start: 20180101
  6. METFORMIN [Concomitant]
     Active Substance: METFORMIN HYDROCHLORIDE
  7. FUROSEMIDE. [Concomitant]
     Active Substance: FUROSEMIDE
  8. BUPROPION. [Concomitant]
     Active Substance: BUPROPION
  9. ZONEGRAN [Concomitant]
     Active Substance: ZONISAMIDE
  10. PHENERGAN [Concomitant]
     Active Substance: PROMETHAZINE HYDROCHLORIDE
  11. MVI WITH BIOTIN [Concomitant]
  12. UPTRAVI [Concomitant]
     Active Substance: SELEXIPAG

REACTIONS (3)
  - Alopecia [None]
  - Oesophagitis [None]
  - Impaired gastric emptying [None]
